FAERS Safety Report 7436177-3 (Version None)
Quarter: 2011Q2

REPORT INFORMATION
  Report Type: 
  Country: None (occurrence: None)
  Receive Date: 20110425
  Receipt Date: 20110421
  Transmission Date: 20111010
  Serious: Yes (Other)
  Sender: FDA-Public Use
  Company Number: US-MERCK-1104USA01327

PATIENT
  Age: 76 Year
  Sex: Female

DRUGS (2)
  1. SINEMET [Suspect]
     Indication: PARKINSON'S DISEASE
     Route: 048
     Dates: start: 20110409, end: 20110409
  2. MIRAPEX [Concomitant]
     Route: 065

REACTIONS (5)
  - PARALYSIS [None]
  - DIZZINESS [None]
  - HYPOKINESIA [None]
  - MUSCULOSKELETAL STIFFNESS [None]
  - HEADACHE [None]
